FAERS Safety Report 25388427 (Version 1)
Quarter: 2025Q2

REPORT INFORMATION
  Report Type: Spontaneous
  Country: GB (occurrence: GB)
  Receive Date: 20250603
  Receipt Date: 20250603
  Transmission Date: 20250717
  Serious: Yes (Other)
  Sender: TEVA
  Company Number: None

PATIENT
  Age: 74 Year
  Sex: Female
  Weight: 46 kg

DRUGS (1)
  1. AMLODIPINE [Suspect]
     Active Substance: AMLODIPINE BESYLATE
     Indication: Hypertension
     Dosage: 5MG PER DAY, DAILY DOSE: 5MG DAILY
     Route: 065
     Dates: start: 20241223

REACTIONS (4)
  - Gingival pain [Recovering/Resolving]
  - Flushing [Recovered/Resolved]
  - Gingival swelling [Unknown]
  - Gingival bleeding [Unknown]
